FAERS Safety Report 18424070 (Version 2)
Quarter: 2020Q4

REPORT INFORMATION
  Report Type: Report from Study
  Country: None (occurrence: HU)
  Receive Date: 20201025
  Receipt Date: 20201029
  Transmission Date: 20210114
  Serious: Yes (Hospitalization)
  Sender: FDA-Public Use
  Company Number: HU-ABBVIE-20K-076-3383234-00

PATIENT
  Age: 65 Year
  Sex: Female

DRUGS (2)
  1. DUODOPA [Suspect]
     Active Substance: CARBIDOPA\LEVODOPA
     Indication: PARKINSON^S DISEASE
     Dosage: MORNING DOSE: 5.0 ML; CONTINUOUS DOSE: 3.6 ML/H; EXTRA DOSE: 1.5 ML
     Route: 050
     Dates: start: 201909, end: 20200722
  2. DUODOPA [Suspect]
     Active Substance: CARBIDOPA\LEVODOPA
     Route: 050

REACTIONS (10)
  - Confusional state [Not Recovered/Not Resolved]
  - Stoma site hypergranulation [Not Recovered/Not Resolved]
  - Streptococcal infection [Unknown]
  - Hospitalisation [Unknown]
  - COVID-19 [Not Recovered/Not Resolved]
  - Stoma site candida [Unknown]
  - Stoma site discharge [Not Recovered/Not Resolved]
  - Device fastener issue [Unknown]
  - Mobility decreased [Not Recovered/Not Resolved]
  - Parkinson^s disease [Unknown]

NARRATIVE: CASE EVENT DATE: 2020
